FAERS Safety Report 4478112-6 (Version None)
Quarter: 2004Q3

REPORT INFORMATION
  Report Type: 
  Country: None (occurrence: None)
  Receive Date: 20040923
  Receipt Date: 20040720
  Transmission Date: 20050211
  Serious: No
  Sender: FDA-Public Use
  Company Number: USA040671191

PATIENT
  Age: 64 Year
  Sex: Female
  Weight: 55 kg

DRUGS (5)
  1. FORTEO [Suspect]
     Indication: OSTEOPOROSIS
     Dosage: 20 UG/1 DAY
     Dates: start: 20031101, end: 20040628
  2. METHOTREXATE [Concomitant]
  3. CORAL CALCIUM SUPREME [Concomitant]
  4. VITAMIN E [Concomitant]
  5. VITAMIN C [Concomitant]

REACTIONS (1)
  - BLOOD CALCIUM INCREASED [None]
